FAERS Safety Report 24363123 (Version 1)
Quarter: 2024Q3

REPORT INFORMATION
  Report Type: Spontaneous
  Country: AU (occurrence: AU)
  Receive Date: 20240925
  Receipt Date: 20240925
  Transmission Date: 20241016
  Serious: Yes (Hospitalization, Other)
  Sender: CSL BEHRING
  Company Number: AU-BEH-2024179058

PATIENT
  Age: 12 Year
  Sex: Male
  Weight: 37.2 kg

DRUGS (12)
  1. HUMAN IMMUNOGLOBULIN G [Suspect]
     Active Substance: HUMAN IMMUNOGLOBULIN G
     Indication: Bacterial infection
     Dosage: 15 G, QMT
     Route: 042
     Dates: start: 20240709, end: 20240709
  2. HUMAN IMMUNOGLOBULIN G [Suspect]
     Active Substance: HUMAN IMMUNOGLOBULIN G
     Indication: Hypogammaglobulinaemia
  3. CYCLOSPORINE [Concomitant]
     Active Substance: CYCLOSPORINE
     Indication: Stem cell therapy
     Dosage: 90 MG, BID
     Dates: start: 20240709
  4. BACTRIM [Concomitant]
     Active Substance: SULFAMETHOXAZOLE\TRIMETHOPRIM
     Indication: Stem cell therapy
     Dosage: 80-400MG, 1 TABLET BD, SAT/SUN
  5. ACYCLOVIR [Concomitant]
     Active Substance: ACYCLOVIR
     Indication: Stem cell therapy
     Dosage: 200 MG, TID
     Dates: start: 20240709
  6. POSACONAZOLE [Concomitant]
     Active Substance: POSACONAZOLE
     Indication: Stem cell therapy
     Dosage: 300 MG, QD
     Dates: start: 20240709
  7. AMLODIPINE [Concomitant]
     Active Substance: AMLODIPINE BESYLATE
     Indication: Hypertension
     Dosage: 5 MG, QD
     Dates: start: 20240709
  8. MAGNESIUM [Concomitant]
     Active Substance: MAGNESIUM
     Indication: Mineral supplementation
     Dosage: UNK, QD
     Dates: start: 20240709
  9. LEVETIRACETAM AFT [Concomitant]
     Indication: Seizure
     Dosage: 1000 MG, BID
     Dates: start: 20240709
  10. ACETAMINOPHEN [Concomitant]
     Active Substance: ACETAMINOPHEN
  11. CETIRIZINE HYDROCHLORIDE [Concomitant]
     Active Substance: CETIRIZINE HYDROCHLORIDE
  12. KEPPRA [Concomitant]
     Active Substance: LEVETIRACETAM
     Dosage: UNK

REACTIONS (5)
  - Seizure [Recovered/Resolved]
  - Drug hypersensitivity [Recovered/Resolved]
  - Chest discomfort [Recovered/Resolved]
  - Oropharyngeal discomfort [Recovered/Resolved]
  - Incorrect drug administration rate [Unknown]

NARRATIVE: CASE EVENT DATE: 20240709
